FAERS Safety Report 7775873-5 (Version None)
Quarter: 2011Q3

REPORT INFORMATION
  Report Type: 
  Country: None (occurrence: None)
  Receive Date: 20110923
  Receipt Date: 20110916
  Transmission Date: 20111222
  Serious: Yes (Hospitalization)
  Sender: FDA-Public Use
  Company Number: US-US-EMD SERONO, INC.-7083885

PATIENT
  Sex: Female

DRUGS (3)
  1. REBIF [Suspect]
     Indication: PRODUCT USED FOR UNKNOWN INDICATION
     Route: 058
     Dates: start: 20110617
  2. SULFA ANTIBIOTICS [Suspect]
     Indication: URINARY TRACT INFECTION
  3. INSULIN [Concomitant]

REACTIONS (4)
  - INJECTION SITE PAIN [None]
  - DRUG HYPERSENSITIVITY [None]
  - URINARY TRACT INFECTION [None]
  - INFLUENZA LIKE ILLNESS [None]
